FAERS Safety Report 5075308-X (Version None)
Quarter: 2006Q3

REPORT INFORMATION
  Report Type: 
  Country: None (occurrence: None)
  Receive Date: 20060807
  Receipt Date: 20060807
  Transmission Date: 20061208
  Serious: No
  Sender: FDA-Public Use
  Company Number: None

PATIENT
  Age: 55 Year
  Sex: Female

DRUGS (2)
  1. FOSAMAX [Suspect]
     Indication: OSTEOPOROSIS
     Dosage: 1 TAB QWEEK ORAL
     Route: 048
     Dates: start: 20050822, end: 20060131
  2. ACTONEL [Suspect]
     Dosage: 1 TAB QWEEK ORAL
     Route: 048
     Dates: start: 20050822, end: 20060131

REACTIONS (2)
  - DYSPEPSIA [None]
  - PHARYNGOLARYNGEAL PAIN [None]
